FAERS Safety Report 11094491 (Version 1)
Quarter: 2015Q2

REPORT INFORMATION
  Report Type: Spontaneous
  Country: US (occurrence: US)
  Receive Date: 20150506
  Receipt Date: 20150506
  Transmission Date: 20150821
  Serious: No
  Sender: FDA-Public Use
  Company Number: US-GLAXOSMITHKLINE-US2015GSK060052

PATIENT
  Sex: Male

DRUGS (1)
  1. VOTRIENT [Suspect]
     Active Substance: PAZOPANIB HYDROCHLORIDE
     Indication: RENAL CELL CARCINOMA
     Dosage: 200 MG, U
     Route: 065
     Dates: start: 20150403

REACTIONS (5)
  - Erythema [Unknown]
  - Epistaxis [Unknown]
  - Abdominal pain [Unknown]
  - Diarrhoea [Unknown]
  - Pain in extremity [Unknown]
